FAERS Safety Report 14403107 (Version 1)
Quarter: 2018Q1

REPORT INFORMATION
  Report Type: Report from Study
  Country: US (occurrence: US)
  Receive Date: 20180117
  Receipt Date: 20180117
  Transmission Date: 20180509
  Serious: No
  Sender: FDA-Public Use
  Company Number: US-AMGEN-USASL2017046472

PATIENT
  Age: 7 Year
  Sex: Male

DRUGS (6)
  1. REPATHA [Suspect]
     Active Substance: EVOLOCUMAB
     Indication: ARTERIOSCLEROSIS
  2. REPATHA [Suspect]
     Active Substance: EVOLOCUMAB
     Indication: TYPE IIA HYPERLIPIDAEMIA
     Dosage: 140 MG/ML, Q2WK
     Route: 058
  3. LOMITAPIDE [Concomitant]
     Active Substance: LOMITAPIDE MESYLATE
     Dosage: 20 MG, UNK
     Dates: start: 201409, end: 201608
  4. KYNAMRO [Concomitant]
     Active Substance: MIPOMERSEN SODIUM
     Dosage: 200 MG, QWK
  5. CRESTOR [Concomitant]
     Active Substance: ROSUVASTATIN CALCIUM
     Dosage: 20 MG, UNK
     Dates: start: 20160302
  6. ZETIA [Concomitant]
     Active Substance: EZETIMIBE
     Dosage: UNK
     Dates: start: 20160321

REACTIONS (1)
  - Off label use [Unknown]
